FAERS Safety Report 10646850 (Version 3)
Quarter: 2015Q2

REPORT INFORMATION
  Report Type: Spontaneous
  Country: US (occurrence: US)
  Receive Date: 20141211
  Receipt Date: 20150410
  Transmission Date: 20150821
  Serious: Yes (Hospitalization, Other)
  Sender: FDA-Public Use
  Company Number: US-BAYER-2014-181247

PATIENT
  Age: 64 Year
  Sex: Male

DRUGS (13)
  1. BETASERON [Suspect]
     Active Substance: INTERFERON BETA-1B
     Indication: MULTIPLE SCLEROSIS
     Dosage: 0.25 MG, QOD
     Route: 058
  2. FLAGYL [Concomitant]
     Active Substance: METRONIDAZOLE\METRONIDAZOLE HYDROCHLORIDE
     Dosage: UNK UNK, TID
     Route: 048
     Dates: start: 20140306
  3. CEFAZOLIN [Concomitant]
     Active Substance: CEFAZOLIN
     Dosage: 2 G, 30 MIN PRE-OP
     Route: 042
  4. CIPRO [Concomitant]
     Active Substance: CIPROFLOXACIN HYDROCHLORIDE
     Dosage: 500 MG, BID
     Route: 048
     Dates: start: 20140306, end: 20140308
  5. KEFLEX [Concomitant]
     Active Substance: CEPHALEXIN
     Dosage: 500 MG, QID (EVERY SIX HOURS)
     Route: 048
     Dates: start: 20140306, end: 20140308
  6. SILODOSIN [Concomitant]
     Active Substance: SILODOSIN
     Dosage: QD8 MG, QD
     Route: 048
  7. LIDOCAINE. [Concomitant]
     Active Substance: LIDOCAINE
     Dosage: 0.3 ML, ONCE
     Route: 023
  8. MIDAZOLAM [Concomitant]
     Active Substance: MIDAZOLAM\MIDAZOLAM HYDROCHLORIDE
  9. FENTANYL. [Concomitant]
     Active Substance: FENTANYL
  10. PROSCAR [Concomitant]
     Active Substance: FINASTERIDE
     Dosage: 5 MG, ONCE DAILY
     Route: 048
     Dates: start: 20130906, end: 20131005
  11. BUPIVACAINE [Concomitant]
     Active Substance: BUPIVACAINE
  12. LACTATED RINGERS [Concomitant]
     Active Substance: CALCIUM CHLORIDE\POTASSIUM CHLORIDE\SODIUM CHLORIDE\SODIUM LACTATE
     Dosage: 100 ML/H
     Dates: start: 20140422, end: 20140422
  13. CYMBALTA [Concomitant]
     Active Substance: DULOXETINE HYDROCHLORIDE
     Dosage: 60 MG, ONCE DAILY
     Route: 048

REACTIONS (9)
  - Hernia [None]
  - Fibromyalgia [None]
  - Urinary incontinence [None]
  - Pain [None]
  - Asthenia [None]
  - Musculoskeletal stiffness [None]
  - Metastatic neoplasm [None]
  - Erectile dysfunction [None]
  - Prostate cancer stage IV [None]

NARRATIVE: CASE EVENT DATE: 20140306
